FAERS Safety Report 8573557-7 (Version None)
Quarter: 2012Q2

REPORT INFORMATION
  Report Type: 
  Country: None (occurrence: None)
  Receive Date: 20120423
  Receipt Date: 20090629
  Transmission Date: 20120825
  Serious: Yes (Death, Other)
  Sender: FDA-Public Use
  Company Number: PHEH2007US07908

PATIENT
  Age: 76 Year
  Sex: Male
  Weight: 75 kg

DRUGS (11)
  1. ZANTAC [Concomitant]
  2. ANTIBIOTICS (NO INGREDIENTS/SUBSTANCES) [Concomitant]
  3. HYDROXYUREA [Concomitant]
  4. EXJADE [Suspect]
     Indication: IRON OVERLOAD
     Dosage: 1500 MG, QD, ORAL, 1000 MG, QD, 1000 MG, QD
     Route: 048
     Dates: start: 20070504, end: 20070521
  5. EXJADE [Suspect]
     Indication: MYELODYSPLASTIC SYNDROME
     Dosage: 1500 MG, QD, ORAL, 1000 MG, QD, 1000 MG, QD
     Route: 048
     Dates: start: 20070504, end: 20070521
  6. EXJADE [Suspect]
     Indication: IRON OVERLOAD
     Dosage: 1500 MG, QD, ORAL, 1000 MG, QD, 1000 MG, QD
     Route: 048
     Dates: start: 20061101, end: 20070402
  7. EXJADE [Suspect]
     Indication: MYELODYSPLASTIC SYNDROME
     Dosage: 1500 MG, QD, ORAL, 1000 MG, QD, 1000 MG, QD
     Route: 048
     Dates: start: 20061101, end: 20070402
  8. EXJADE [Suspect]
     Indication: IRON OVERLOAD
     Dosage: 1500 MG, QD, ORAL, 1000 MG, QD, 1000 MG, QD
     Route: 048
     Dates: start: 20070402, end: 20070417
  9. EXJADE [Suspect]
     Indication: MYELODYSPLASTIC SYNDROME
     Dosage: 1500 MG, QD, ORAL, 1000 MG, QD, 1000 MG, QD
     Route: 048
     Dates: start: 20070402, end: 20070417
  10. IBUPROFEN [Concomitant]
  11. HYDROXYUREA [Concomitant]

REACTIONS (5)
  - GASTROINTESTINAL TOXICITY [None]
  - OEDEMA PERIPHERAL [None]
  - DISEASE PROGRESSION [None]
  - ACUTE MYELOID LEUKAEMIA [None]
  - PETECHIAE [None]
